FAERS Safety Report 4393985-3 (Version None)
Quarter: 2004Q3

REPORT INFORMATION
  Report Type: 
  Country: None (occurrence: None)
  Receive Date: 20040702
  Receipt Date: 20040628
  Transmission Date: 20050211
  Serious: Yes (Life-Threatening, Hospitalization)
  Sender: FDA-Public Use
  Company Number: 2004UW13305

PATIENT
  Age: 79 Year
  Sex: Female
  Weight: 65.2 kg

DRUGS (6)
  1. IRESSA [Suspect]
     Indication: COLORECTAL CANCER METASTATIC
     Dosage: 250 MG DAILY PO
     Route: 048
     Dates: start: 20031205, end: 20040618
  2. IRINOTECAN [Suspect]
     Indication: COLORECTAL CANCER METASTATIC
     Dosage: 150 MG/M2 DAILY IV
     Route: 042
     Dates: start: 20031205, end: 20040618
  3. LEUCOVORIN CALCIUM [Suspect]
     Indication: COLORECTAL CANCER METASTATIC
     Dosage: 200 MG/M2 DAILY IV
     Route: 042
     Dates: start: 20031205, end: 20040618
  4. FLUOROURACIL [Suspect]
     Indication: COLORECTAL CANCER METASTATIC
     Dosage: 320 MG/M2 DAILY IV
     Route: 042
     Dates: start: 20031205, end: 20040618
  5. FLUOROURACIL [Suspect]
     Indication: COLORECTAL CANCER METASTATIC
     Dosage: 1000 MG/M2 DAILY IV
     Route: 042
     Dates: start: 20031205, end: 20040618
  6. VICODIN [Concomitant]

REACTIONS (2)
  - PERFORATED ULCER [None]
  - PYREXIA [None]
